FAERS Safety Report 20816362 (Version 1)
Quarter: 2022Q2

REPORT INFORMATION
  Report Type: Spontaneous
  Country: None (occurrence: US)
  Receive Date: 20220512
  Receipt Date: 20220512
  Transmission Date: 20220721
  Serious: Yes (Hospitalization, Other)
  Sender: FDA-Public Use
  Company Number: US-Oxford Pharmaceuticals, LLC-2128707

PATIENT
  Age: 19 Year
  Sex: Male

DRUGS (9)
  1. BACLOFEN [Suspect]
     Active Substance: BACLOFEN
     Indication: Dystonia
     Route: 037
  2. CARBIDOPA\LEVODOPA [Concomitant]
     Active Substance: CARBIDOPA\LEVODOPA
  3. BOTULINUM TOXIN NOS [Concomitant]
     Active Substance: BOTULINUM TOXIN NOS
  4. QUETIAPINE [Concomitant]
     Active Substance: QUETIAPINE
  5. LITHIUM [Concomitant]
     Active Substance: LITHIUM
  6. LAMOTRIGINE [Concomitant]
     Active Substance: LAMOTRIGINE
  7. VALPROIC ACID [Concomitant]
     Active Substance: VALPROIC ACID
  8. DIAZEPAM [Concomitant]
     Active Substance: DIAZEPAM
  9. CITALOPRAM [Concomitant]
     Active Substance: CITALOPRAM HYDROBROMIDE

REACTIONS (5)
  - Abnormal behaviour [Recovering/Resolving]
  - Bipolar II disorder [Unknown]
  - Agitation [Unknown]
  - Tremor [Unknown]
  - Drug ineffective [Unknown]
